FAERS Safety Report 20578872 (Version 1)
Quarter: 2022Q1

REPORT INFORMATION
  Report Type: Spontaneous
  Country: GB (occurrence: GB)
  Receive Date: 20220310
  Receipt Date: 20220310
  Transmission Date: 20220423
  Serious: Yes (Other)
  Sender: FDA-Public Use
  Company Number: GB-MHRA-MED-202202281357069020-GBQFY

PATIENT
  Age: 23 Year
  Sex: Male

DRUGS (1)
  1. CITALOPRAM [Suspect]
     Active Substance: CITALOPRAM HYDROBROMIDE
     Indication: Depression
     Dosage: 10 MILLIGRAM, QD, (10MG ONCE EACH DAY)
     Dates: start: 20220221, end: 20220227

REACTIONS (4)
  - Anger [Recovering/Resolving]
  - Frustration tolerance decreased [Unknown]
  - Condition aggravated [Unknown]
  - Suicidal ideation [Unknown]

NARRATIVE: CASE EVENT DATE: 20220221
